FAERS Safety Report 9226786 (Version 1)
Quarter: 2013Q2

REPORT INFORMATION
  Report Type: Spontaneous
  Country: JP (occurrence: None)
  Receive Date: 20130410
  Receipt Date: 20130410
  Transmission Date: 20140414
  Serious: Yes (Other)
  Sender: FDA-Public Use
  Company Number: FK201301038

PATIENT
  Age: 84 Year
  Sex: Male

DRUGS (2)
  1. TRANEXAMIC ACID (TRANEXAMIC ACID) [Suspect]
     Indication: EXTRACORPOREAL CIRCULATION
     Dosage: 5 GM PRIOR TO EXTRACORPOREAL
  2. SODIUM CHLORIDE [Suspect]
     Indication: MEDICATION DILUTION
     Dosage: 100 ML TO DISSOLVE THE TRANEXAMIC ACID

REACTIONS (2)
  - Grand mal convulsion [None]
  - Grand mal convulsion [None]
